FAERS Safety Report 15957728 (Version 1)
Quarter: 2019Q1

REPORT INFORMATION
  Report Type: Spontaneous
  Country: JP (occurrence: JP)
  Receive Date: 20190213
  Receipt Date: 20190213
  Transmission Date: 20190417
  Serious: Yes (Hospitalization)
  Sender: FDA-Public Use
  Company Number: PHHY2019JP029350

PATIENT
  Age: 61 Year
  Sex: Female

DRUGS (2)
  1. DABRAFENIB [Suspect]
     Active Substance: DABRAFENIB
     Indication: MALIGNANT MELANOMA
     Route: 065
  2. TRAMETINIB [Suspect]
     Active Substance: TRAMETINIB
     Indication: MALIGNANT MELANOMA
     Route: 065

REACTIONS (7)
  - Pyrexia [Recovering/Resolving]
  - Rhabdomyolysis [Recovering/Resolving]
  - Fatigue [Recovering/Resolving]
  - Myoglobinuria [Recovering/Resolving]
  - Blood creatine phosphokinase increased [Recovering/Resolving]
  - Fibrin D dimer increased [Recovering/Resolving]
  - Pain in extremity [Recovering/Resolving]
